FAERS Safety Report 6257226-4 (Version None)
Quarter: 2009Q3

REPORT INFORMATION
  Report Type: 
  Country: None (occurrence: None)
  Receive Date: 20090706
  Receipt Date: 20090624
  Transmission Date: 20100115
  Serious: Yes (Hospitalization)
  Sender: FDA-Public Use
  Company Number: FR-PFIZER INC-2009231156

PATIENT
  Age: 92 Year

DRUGS (12)
  1. ALDACTONE [Suspect]
     Indication: HYPERTENSION
     Dosage: 1 DF, 1X/DAY
     Route: 048
     Dates: end: 20090202
  2. COUMADIN [Suspect]
     Indication: PROPHYLAXIS
     Dosage: UNK
     Route: 048
  3. COTAREG [Suspect]
     Indication: ESSENTIAL HYPERTENSION
     Dosage: 1 DF, 1X/DAY
     Route: 048
     Dates: end: 20090202
  4. LASIX [Suspect]
     Indication: HYPERTENSION
     Dosage: 20 MG, 1X/DAY
     Route: 048
  5. HEMIGOXINE NATIVELLE [Suspect]
     Indication: ARRHYTHMIA
     Dosage: 1 DF, 1X/DAY
     Route: 048
     Dates: end: 20090202
  6. ADANCOR [Suspect]
     Indication: ANGINA PECTORIS
     Dosage: 1 DF, 1X/DAY
     Route: 048
     Dates: end: 20090202
  7. DISCOTRINE [Suspect]
     Indication: PROPHYLAXIS
     Dosage: 1 DF, 1X/DAY
     Route: 062
     Dates: end: 20090202
  8. CORDARONE [Suspect]
     Indication: ARRHYTHMIA
     Dosage: 1 DF, 1X/DAY
     Route: 048
     Dates: end: 20090202
  9. SINGULAIR ^DIECKMANN^ [Concomitant]
     Dosage: UNK
  10. NEXIUM [Concomitant]
     Dosage: UNK
  11. TEMESTA [Concomitant]
     Dosage: UNK
  12. SERETIDE [Concomitant]
     Dosage: UNK

REACTIONS (2)
  - HAEMATOMA [None]
  - OVERDOSE [None]
